FAERS Safety Report 8009523-X (Version None)
Quarter: 2011Q4

REPORT INFORMATION
  Report Type: 
  Country: None (occurrence: None)
  Receive Date: 20111227
  Receipt Date: 20111220
  Transmission Date: 20120403
  Serious: Yes (Hospitalization)
  Sender: FDA-Public Use
  Company Number: SE-MERCK-1112SWE00030

PATIENT
  Age: 70 Year
  Sex: Female

DRUGS (5)
  1. JANUVIA [Suspect]
     Indication: DIABETES MELLITUS
     Route: 048
     Dates: start: 20110908, end: 20110922
  2. ROSUVASTATIN CALCIUM [Concomitant]
     Route: 065
  3. WARFARIN SODIUM [Concomitant]
     Route: 048
  4. BISOPROLOL FUMARATE [Concomitant]
     Route: 048
  5. HYDROCHLOROTHIAZIDE AND IRBESARTAN [Concomitant]
     Route: 065

REACTIONS (5)
  - TONGUE OEDEMA [None]
  - PARAESTHESIA ORAL [None]
  - OROPHARYNGEAL PAIN [None]
  - DYSPHAGIA [None]
  - DYSPNOEA [None]
